FAERS Safety Report 4952509-X (Version None)
Quarter: 2006Q1

REPORT INFORMATION
  Report Type: 
  Country: None (occurrence: None)
  Receive Date: 20060323
  Receipt Date: 20051005
  Transmission Date: 20060701
  Serious: Yes (Hospitalization)
  Sender: FDA-Public Use
  Company Number: US-MERCK-0510USA04292

PATIENT
  Age: 50 Year
  Sex: Female
  Weight: 89 kg

DRUGS (5)
  1. VIOXX [Suspect]
     Indication: OSTEOARTHRITIS
     Route: 048
     Dates: start: 20040721, end: 20040920
  2. VIOXX [Suspect]
     Indication: ANALGESIC EFFECT
     Route: 048
     Dates: start: 20040721, end: 20040920
  3. PREMARIN [Concomitant]
     Route: 065
  4. HYDROXYZINE HYDROCHLORIDE [Concomitant]
     Route: 065
  5. NAPROXEN [Concomitant]
     Route: 065

REACTIONS (4)
  - CHEST PAIN [None]
  - HYPOAESTHESIA [None]
  - NASOPHARYNGITIS [None]
  - PAIN IN EXTREMITY [None]
